FAERS Safety Report 7679436-1 (Version None)
Quarter: 2011Q3

REPORT INFORMATION
  Report Type: 
  Country: None (occurrence: None)
  Receive Date: 20110812
  Receipt Date: 20110802
  Transmission Date: 20111222
  Serious: Yes (Hospitalization)
  Sender: FDA-Public Use
  Company Number: CA-JNJFOC-20110803365

PATIENT
  Sex: Female
  Weight: 97 kg

DRUGS (7)
  1. ASPIRIN [Concomitant]
     Route: 048
  2. AMLODIPINE [Concomitant]
     Route: 048
  3. REMICADE [Suspect]
     Indication: COLITIS ULCERATIVE
     Route: 042
     Dates: start: 20060101
  4. LEVOTHYROXINE SODIUM [Concomitant]
     Route: 048
  5. METOPROLOL TARTRATE [Concomitant]
     Route: 048
  6. COLACE [Concomitant]
     Route: 048
  7. SENNA [Concomitant]
     Route: 048

REACTIONS (2)
  - CEREBROVASCULAR ACCIDENT [None]
  - ASTHENIA [None]
